FAERS Safety Report 8370187-7 (Version None)
Quarter: 2012Q2

REPORT INFORMATION
  Report Type: 
  Country: None (occurrence: None)
  Receive Date: 20120518
  Receipt Date: 20120511
  Transmission Date: 20120825
  Serious: Yes (Hospitalization)
  Sender: FDA-Public Use
  Company Number: SE-B.I. PHARMACEUTICALS,INC./RIDGEFIELD-2012-SW-00213SW

PATIENT
  Sex: Male
  Weight: 71.3 kg

DRUGS (9)
  1. ATACAND [Concomitant]
     Indication: HYPERTENSION
     Dosage: 16 MG
     Dates: start: 20110801
  2. PRADAXA [Suspect]
     Indication: CEREBROVASCULAR ACCIDENT
     Dosage: 220 MG
     Dates: start: 20120314, end: 20120321
  3. PRADAXA [Suspect]
     Indication: ATRIAL FIBRILLATION
     Dosage: 220 MG
     Dates: start: 20120209, end: 20120309
  4. HYDROXOCOBALAMIN [Concomitant]
     Indication: VITAMIN B12 DEFICIENCY
     Dosage: 1 MG
     Dates: start: 20090604
  5. ISPOPTIN RETARD [Concomitant]
     Indication: HYPERTENSION
     Dosage: 180 MG
     Dates: start: 20100531
  6. ATACAND [Concomitant]
     Indication: DIABETIC NEPHROPATHY
  7. ATACAND [Concomitant]
     Indication: ALBUMINURIA
  8. EZETIMIBE [Concomitant]
     Indication: HYPERLIPIDAEMIA
     Dosage: 10 MG
     Dates: start: 20111115
  9. GLIPIZIDE [Concomitant]
     Indication: DIABETES MELLITUS
     Dosage: 10 MG
     Dates: start: 20090101

REACTIONS (4)
  - GENERAL PHYSICAL HEALTH DETERIORATION [None]
  - DYSPNOEA [None]
  - BLOOD CREATININE INCREASED [None]
  - FATIGUE [None]
